FAERS Safety Report 4988077-6 (Version None)
Quarter: 2006Q2

REPORT INFORMATION
  Report Type: 
  Country: None (occurrence: None)
  Receive Date: 20060425
  Receipt Date: 20060124
  Transmission Date: 20061013
  Serious: Yes (Hospitalization)
  Sender: FDA-Public Use
  Company Number: 2006-137578-NL

PATIENT
  Age: 19 Year
  Sex: Female

DRUGS (1)
  1. NUVARING [Suspect]
     Indication: CONTRACEPTION
     Dosage: DF VAGINAL
     Route: 067

REACTIONS (2)
  - ABASIA [None]
  - PELVIC VENOUS THROMBOSIS [None]
